FAERS Safety Report 18058385 (Version 1)
Quarter: 2020Q3

REPORT INFORMATION
  Report Type: Spontaneous
  Country: US (occurrence: US)
  Receive Date: 20200723
  Receipt Date: 20200723
  Transmission Date: 20201103
  Serious: No
  Sender: FDA-Public Use
  Company Number: US-009507513-2007USA005584

PATIENT
  Age: 15 Day
  Sex: Female
  Weight: 1.05 kg

DRUGS (1)
  1. CUBICIN [Suspect]
     Active Substance: DAPTOMYCIN
     Indication: THROMBOSIS
     Dosage: 6 MILLIGRAM/KILOGRAM, Q12H

REACTIONS (1)
  - Off label use [Unknown]
